FAERS Safety Report 11097633 (Version 1)
Quarter: 2015Q2

REPORT INFORMATION
  Report Type: Spontaneous
  Country: US (occurrence: US)
  Receive Date: 20150507
  Receipt Date: 20150507
  Transmission Date: 20150821
  Serious: Yes (Hospitalization, Other)
  Sender: FDA-Public Use
  Company Number: US-APOTEX-2015AP008970

PATIENT
  Age: 2 Year
  Sex: Female

DRUGS (2)
  1. DONEPEZIL HYDROCHLORIDE TABLETS USP [Suspect]
     Active Substance: DONEPEZIL HYDROCHLORIDE
     Indication: ACCIDENTAL EXPOSURE TO PRODUCT BY CHILD
     Route: 048
  2. MEMANTINE [Suspect]
     Active Substance: MEMANTINE
     Indication: ACCIDENTAL EXPOSURE TO PRODUCT BY CHILD
     Route: 048

REACTIONS (3)
  - Encephalopathy [Recovered/Resolved]
  - Accidental exposure to product by child [Recovered/Resolved]
  - Accidental overdose [Recovered/Resolved]
